FAERS Safety Report 22034608 (Version 2)
Quarter: 2023Q1

REPORT INFORMATION
  Report Type: Spontaneous
  Country: US (occurrence: US)
  Receive Date: 20230224
  Receipt Date: 20230224
  Transmission Date: 20230418
  Serious: Yes (Other)
  Sender: FDA-Public Use
  Company Number: US-PFIZER INC-PV202300034597

PATIENT
  Age: 81 Year
  Sex: Female

DRUGS (3)
  1. IBRANCE [Suspect]
     Active Substance: PALBOCICLIB
     Indication: Breast cancer female
     Dosage: 75 MG
  2. FASLODEX [Suspect]
     Active Substance: FULVESTRANT
     Dosage: UNK
  3. XGEVA [Suspect]
     Active Substance: DENOSUMAB
     Dosage: MONTHLY

REACTIONS (4)
  - Pleural effusion [Unknown]
  - Abdominal pain [Unknown]
  - Abdominal distension [Unknown]
  - Dyspnoea [Unknown]
